FAERS Safety Report 10811483 (Version 1)
Quarter: 2015Q1

REPORT INFORMATION
  Report Type: Spontaneous
  Country: US (occurrence: None)
  Receive Date: 20150212
  Receipt Date: 20150212
  Transmission Date: 20150721
  Serious: No
  Sender: FDA-Public Use
  Company Number: None

PATIENT
  Age: 65 Year
  Sex: Female
  Weight: 61.24 kg

DRUGS (8)
  1. MUCINEX [Suspect]
     Active Substance: GUAIFENESIN
     Indication: PHARYNGEAL MUCOSA ATROPHY
     Dosage: 1 OR 2 TABLETS ONCE DAILY TAKEN BY MOUTH PRN
     Route: 048
  2. MULTIVITAMIN [Concomitant]
     Active Substance: VITAMINS
  3. VITAMIN D [Concomitant]
     Active Substance: CHOLECALCIFEROL
  4. MUCINEX [Suspect]
     Active Substance: GUAIFENESIN
     Indication: SINUS DISORDER
     Dosage: 1 OR 2 TABLETS ONCE DAILY TAKEN BY MOUTH PRN
     Route: 048
  5. ALLERGY 24 HRS [Concomitant]
  6. VITAMIN C [Concomitant]
     Active Substance: ASCORBIC ACID
  7. MONTELUKAST SODIUM. [Concomitant]
     Active Substance: MONTELUKAST SODIUM
  8. MUCINEX [Concomitant]
     Active Substance: GUAIFENESIN

REACTIONS (2)
  - Product shape issue [None]
  - Product colour issue [None]

NARRATIVE: CASE EVENT DATE: 20150211
